FAERS Safety Report 5271851-9 (Version None)
Quarter: 2007Q1

REPORT INFORMATION
  Report Type: 
  Country: None (occurrence: None)
  Receive Date: 20070321
  Receipt Date: 20070309
  Transmission Date: 20070707
  Serious: Yes (Other)
  Sender: FDA-Public Use
  Company Number: BR-PFIZER INC-2007019705

PATIENT
  Sex: Female

DRUGS (7)
  1. LIPITOR [Suspect]
     Indication: BLOOD CHOLESTEROL INCREASED
     Route: 048
  2. CALTRATE [Concomitant]
     Route: 048
  3. PROPAFENONE HCL [Concomitant]
     Route: 048
  4. HIGROTON [Concomitant]
     Route: 048
  5. CHONDROITIN/GLUCOSAMINE [Concomitant]
     Route: 048
  6. EUTHYROX [Concomitant]
     Indication: HORMONE REPLACEMENT THERAPY
     Route: 048
  7. FOSAMAX [Concomitant]
     Route: 048

REACTIONS (1)
  - BREAST MASS [None]
